FAERS Safety Report 19640988 (Version 1)
Quarter: 2021Q3

REPORT INFORMATION
  Report Type: Spontaneous
  Country: BR (occurrence: BR)
  Receive Date: 20210730
  Receipt Date: 20210730
  Transmission Date: 20211014
  Serious: Yes (Death, Other)
  Sender: FDA-Public Use
  Company Number: BR-HQ SPECIALTY-BR-2021INT000121

PATIENT
  Age: 72 Year
  Sex: Male

DRUGS (2)
  1. VINORELBINE [Suspect]
     Active Substance: VINORELBINE TARTRATE
     Indication: NON-SMALL CELL LUNG CANCER
     Dosage: 30 MG/M2, DAYS 1.8,15 EVERY THREE WEEKS FOR FOUR CYCLES
     Route: 065
  2. CISPLATIN. [Suspect]
     Active Substance: CISPLATIN
     Indication: NON-SMALL CELL LUNG CANCER
     Dosage: 80 MG/M2 ON DAY 1, EVERY THREE WEEKS FOR FOUR CYCLES
     Route: 065

REACTIONS (2)
  - Acute kidney injury [Fatal]
  - Febrile neutropenia [Fatal]
